FAERS Safety Report 7044117-4 (Version None)
Quarter: 2010Q4

REPORT INFORMATION
  Report Type: 
  Country: None (occurrence: None)
  Receive Date: 20101013
  Receipt Date: 20101005
  Transmission Date: 20110411
  Serious: Yes (Other)
  Sender: FDA-Public Use
  Company Number: US-PFIZER INC-2010126917

PATIENT
  Age: 52 Year
  Sex: Male

DRUGS (1)
  1. MICRONASE [Suspect]
     Dosage: UNK

REACTIONS (4)
  - APPENDICECTOMY [None]
  - CHOLECYSTECTOMY [None]
  - CORONARY ARTERY BYPASS [None]
  - MYOCARDIAL INFARCTION [None]
